FAERS Safety Report 6817872-3 (Version None)
Quarter: 2010Q3

REPORT INFORMATION
  Report Type: 
  Country: None (occurrence: None)
  Receive Date: 20100706
  Receipt Date: 20100628
  Transmission Date: 20110219
  Serious: Yes (Death, Life-Threatening, Other)
  Sender: FDA-Public Use
  Company Number: JP-BRISTOL-MYERS SQUIBB COMPANY-14930614

PATIENT
  Age: 74 Year
  Sex: Male

DRUGS (19)
  1. SPRYCEL [Suspect]
     Indication: ACUTE LYMPHOCYTIC LEUKAEMIA RECURRENT
     Dosage: 16NOV09-21NOV;7DEC-21DEC09;RESUMED 29DEC09 50MG;4-07MAR10,50*2MG/DAY,08MAY-07JUN10,70*2MG/DAY.
     Route: 048
     Dates: start: 20091116, end: 20100607
  2. SPRYCEL [Suspect]
     Indication: CHRONIC MYELOID LEUKAEMIA
     Dosage: 16NOV09-21NOV;7DEC-21DEC09;RESUMED 29DEC09 50MG;4-07MAR10,50*2MG/DAY,08MAY-07JUN10,70*2MG/DAY.
     Route: 048
     Dates: start: 20091116, end: 20100607
  3. ENDOXAN TABS [Suspect]
     Indication: ACUTE LYMPHOCYTIC LEUKAEMIA
     Dosage: FORM: TAB.INTERRUPTED ON 04-APR-2010 AND FROM 14-MAY-2010 CONTI
     Route: 048
     Dates: start: 20100226
  4. METHOTREXATE [Suspect]
     Indication: ACUTE LYMPHOCYTIC LEUKAEMIA
     Route: 037
     Dates: start: 20091112, end: 20100310
  5. CYLOCIDE [Suspect]
     Indication: ACUTE LYMPHOCYTIC LEUKAEMIA
     Dosage: 40MG/D 10MAR-10MAR2010
     Route: 037
     Dates: start: 20091112, end: 20100310
  6. VANCOMYCIN HCL [Suspect]
     Indication: SEPSIS
     Route: 042
     Dates: start: 20100524, end: 20100608
  7. VFEND [Suspect]
     Indication: PULMONARY FIBROSIS
     Dosage: 28-29MAY10 320MG/DAY.30MAY10-07JUN10-200 MG/DAY.
     Route: 042
     Dates: start: 20100528, end: 20100607
  8. DECADRON [Concomitant]
     Indication: ACUTE LYMPHOCYTIC LEUKAEMIA
     Dosage: 4MG/D 10MAR-10MAR2010
     Route: 037
     Dates: start: 20091112, end: 20091112
  9. PREDNISOLONE SODIUM SUCCINATE INJ [Concomitant]
     Indication: ACUTE LYMPHOCYTIC LEUKAEMIA
     Route: 037
     Dates: start: 20091119
  10. MECOBALAMIN [Concomitant]
     Indication: PROPHYLAXIS
     Route: 048
     Dates: start: 20091112, end: 20100614
  11. SODIUM BICARBONATE [Concomitant]
     Indication: PROPHYLAXIS
     Route: 048
     Dates: start: 20091112, end: 20100614
  12. ALOSITOL [Concomitant]
     Indication: PROPHYLAXIS
     Dosage: TAB.
     Route: 048
     Dates: start: 20091112, end: 20100614
  13. PREDONINE [Concomitant]
     Indication: ACUTE LYMPHOCYTIC LEUKAEMIA
     Dosage: 20 MG UNK-10FEB2010, 17.5MG 18FEB2010-23FEB2010;20MG 24FEB2010-ONG,TAB.
     Route: 048
     Dates: start: 20100224, end: 20100614
  14. COTRIM [Concomitant]
     Indication: PROPHYLAXIS
     Dosage: 1DF- 1 TAB.
     Route: 048
     Dates: start: 20091226, end: 20100614
  15. ITRACONAZOLE [Concomitant]
     Indication: PROPHYLAXIS
     Dosage: FORM: CAP.
     Route: 048
     Dates: start: 20100309, end: 20100414
  16. VALTREX [Concomitant]
     Dosage: THERAPY 07APR-11APR10,1000 MG/DAY.P.O.27APR10-03MAY10 1000 MG/DAY.P.O.
     Route: 048
     Dates: start: 20100407
  17. MAXIPIME [Concomitant]
     Dosage: 21MAY-24MAY10 2G/DAY IV,27MAY10-7JUN10 4G/DAY,IV.
     Route: 042
     Dates: start: 20100521, end: 20100607
  18. LASIX [Concomitant]
     Dosage: 09JUN10-09JUN10,10MG/DAY,IV,10JUN-11JUN10 960MG/DAY,IV.
     Route: 042
     Dates: start: 20100609, end: 20100611
  19. INOVAN [Concomitant]
     Dosage: INJ.
     Route: 042
     Dates: start: 20100610, end: 20100611

REACTIONS (6)
  - ASPERGILLUS TEST POSITIVE [None]
  - NEUTROPHIL COUNT DECREASED [None]
  - PLATELET COUNT DECREASED [None]
  - PLEURAL EFFUSION [None]
  - RENAL IMPAIRMENT [None]
  - SEPSIS [None]
